FAERS Safety Report 5722553-3 (Version None)
Quarter: 2008Q2

REPORT INFORMATION
  Report Type: 
  Country: None (occurrence: None)
  Receive Date: 20080429
  Receipt Date: 20070820
  Transmission Date: 20081010
  Serious: No
  Sender: FDA-Public Use
  Company Number: US-ASTRAZENECA-2007UW19949

PATIENT
  Sex: Male

DRUGS (4)
  1. NEXIUM [Suspect]
     Indication: EROSIVE OESOPHAGITIS
     Route: 048
     Dates: start: 20070719
  2. AMITRIPTYLINE HCL [Concomitant]
  3. NEURONTIN [Concomitant]
  4. LISINOPRIL [Concomitant]

REACTIONS (1)
  - DYSPHONIA [None]
